FAERS Safety Report 23035277 (Version 2)
Quarter: 2023Q4

REPORT INFORMATION
  Report Type: Spontaneous
  Country: BR (occurrence: BR)
  Receive Date: 20231005
  Receipt Date: 20231017
  Transmission Date: 20240109
  Serious: Yes (Disabling, Other)
  Sender: FDA-Public Use
  Company Number: BR-MALLINCKRODT-MNK202304841

PATIENT
  Age: 20 Year
  Sex: Male
  Weight: 50 kg

DRUGS (2)
  1. AMITIZA [Suspect]
     Active Substance: LUBIPROSTONE
     Indication: Gastrointestinal disorder
     Route: 048
  2. AMITIZA [Suspect]
     Active Substance: LUBIPROSTONE

REACTIONS (7)
  - Gait disturbance [Unknown]
  - Cerebral palsy [Unknown]
  - Autism spectrum disorder [Unknown]
  - Hypoacusis [Unknown]
  - Visual impairment [Unknown]
  - Dyschezia [Recovered/Resolved]
  - Incorrect dose administered [Unknown]
